FAERS Safety Report 7063193-6 (Version None)
Quarter: 2010Q4

REPORT INFORMATION
  Report Type: 
  Country: None (occurrence: None)
  Receive Date: 20101026
  Receipt Date: 20100504
  Transmission Date: 20110411
  Serious: Yes (Other)
  Sender: FDA-Public Use
  Company Number: US-PFIZER INC-2010056427

PATIENT
  Sex: Male
  Weight: 90.703 kg

DRUGS (1)
  1. LIPITOR [Suspect]
     Dosage: UNK
     Dates: start: 20020101, end: 20090101

REACTIONS (1)
  - MUSCULAR WEAKNESS [None]
